FAERS Safety Report 4625538-3 (Version None)
Quarter: 2005Q2

REPORT INFORMATION
  Report Type: 
  Country: None (occurrence: None)
  Receive Date: 20050401
  Receipt Date: 20040812
  Transmission Date: 20051028
  Serious: Yes (Hospitalization)
  Sender: FDA-Public Use
  Company Number: IE-MERCK-0408GBR00126

PATIENT
  Age: 44 Year
  Sex: Female
  Weight: 120 kg

DRUGS (5)
  1. SINGULAIR [Suspect]
     Indication: ASTHMA
     Route: 048
     Dates: start: 20020201, end: 20040201
  2. AMLODIPINE BESYLATE [Concomitant]
     Indication: HYPERTENSION
     Route: 065
     Dates: start: 20010101
  3. ALBUTEROL SULFATE AND IPRATROPIUM BROMIDE [Concomitant]
     Indication: ASTHMA
     Route: 065
     Dates: start: 20010101
  4. FLUTICASONE PROPIONATE AND SALMETEROL XINAFOATE [Concomitant]
     Indication: ASTHMA
     Route: 065
     Dates: start: 20010101
  5. LEVOTHYROXINE SODIUM [Concomitant]
     Indication: HYPOTHYROIDISM
     Route: 065
     Dates: start: 20010101

REACTIONS (8)
  - ANAEMIA [None]
  - BLOOD CALCIUM ABNORMAL [None]
  - BRAIN SCAN ABNORMAL [None]
  - CALCIPHYLAXIS [None]
  - GASTRIC ULCER [None]
  - GENERAL PHYSICAL HEALTH DETERIORATION [None]
  - SEPSIS [None]
  - VASCULAR CALCIFICATION [None]
